FAERS Safety Report 17669732 (Version 1)
Quarter: 2020Q2

REPORT INFORMATION
  Report Type: Spontaneous
  Country: TW (occurrence: TW)
  Receive Date: 20200415
  Receipt Date: 20200415
  Transmission Date: 20200713
  Serious: Yes (Other)
  Sender: FDA-Public Use
  Company Number: TW-ELI_LILLY_AND_COMPANY-TW202004002831

PATIENT
  Age: 54 Year
  Sex: Male

DRUGS (2)
  1. CYRAMZA [Suspect]
     Active Substance: RAMUCIRUMAB
     Indication: OESOPHAGEAL ADENOCARCINOMA
     Dosage: UNK, UNKNOWN
     Route: 065
  2. PACLITAXEL. [Concomitant]
     Active Substance: PACLITAXEL
     Indication: OESOPHAGEAL ADENOCARCINOMA
     Dosage: UNK, UNKNOWN

REACTIONS (2)
  - Therapy partial responder [Unknown]
  - Neurotoxicity [Unknown]
